FAERS Safety Report 13076210 (Version 1)
Quarter: 2016Q4

REPORT INFORMATION
  Report Type: Spontaneous
  Country: US (occurrence: US)
  Receive Date: 20161230
  Receipt Date: 20161230
  Transmission Date: 20170207
  Serious: Yes (Other)
  Sender: FDA-Public Use
  Company Number: US-SA-2016SA233555

PATIENT
  Age: 80 Year
  Sex: Female

DRUGS (1)
  1. ALLEGRA [Suspect]
     Active Substance: FEXOFENADINE HYDROCHLORIDE
     Indication: MULTIPLE ALLERGIES
     Dosage: DOSAGE: TABLETS IN THIS PARTICULAR BOTTLE OF ALLEGRA GELCAPS
     Route: 048

REACTIONS (5)
  - Product quality issue [Unknown]
  - Fatigue [Unknown]
  - Visual acuity reduced [Unknown]
  - Glaucoma [Unknown]
  - Arthritis [Unknown]
